FAERS Safety Report 5266264-X (Version None)
Quarter: 2007Q1

REPORT INFORMATION
  Report Type: 
  Country: None (occurrence: None)
  Receive Date: 20070315
  Receipt Date: 20070309
  Transmission Date: 20070707
  Serious: Yes (Hospitalization)
  Sender: FDA-Public Use
  Company Number: CH-MERCK-0703CHE00006

PATIENT
  Age: 90 Year
  Sex: Female

DRUGS (8)
  1. COZAAR [Suspect]
     Indication: CARDIAC FAILURE CONGESTIVE
     Route: 048
     Dates: start: 20061009, end: 20061017
  2. AUGMENTIN [Suspect]
     Indication: BRONCHOPNEUMONIA
     Route: 042
     Dates: start: 20060927, end: 20061006
  3. ENOXAPARIN SODIUM [Suspect]
     Route: 058
     Dates: start: 20060927, end: 20061017
  4. LASIX [Concomitant]
     Route: 048
     Dates: start: 20061004
  5. ASPIRIN [Concomitant]
     Route: 048
  6. ALDACTONE [Concomitant]
     Route: 048
     Dates: start: 20060927
  7. CEFTRIAXONE SODIUM [Concomitant]
     Route: 065
     Dates: end: 20060926
  8. IRBESARTAN [Concomitant]
     Route: 065
     Dates: end: 20061006

REACTIONS (4)
  - C-REACTIVE PROTEIN INCREASED [None]
  - DRUG HYPERSENSITIVITY [None]
  - HENOCH-SCHONLEIN PURPURA [None]
  - RENAL FAILURE [None]
